FAERS Safety Report 11792837 (Version 6)
Quarter: 2016Q2

REPORT INFORMATION
  Report Type: Report from Study
  Country: FR (occurrence: FR)
  Receive Date: 20151202
  Receipt Date: 20160615
  Transmission Date: 20160815
  Serious: Yes (Life-Threatening, Hospitalization, Disabling, Other)
  Sender: FDA-Public Use
  Company Number: PHHY2015FR155622

PATIENT
  Age: 56 Year
  Sex: Female

DRUGS (9)
  1. MITOXANTRONE [Suspect]
     Active Substance: MITOXANTRONE HYDROCHLORIDE
     Indication: DISTURBANCE IN ATTENTION
  2. TYSABRI [Suspect]
     Active Substance: NATALIZUMAB
     Indication: MULTIPLE SCLEROSIS
     Dosage: UNK
     Route: 042
     Dates: start: 201002, end: 20150106
  3. ESOMEPRAZOL//ESOMEPRAZOLE [Concomitant]
     Indication: PRODUCT USED FOR UNKNOWN INDICATION
     Dosage: 20 MG, QD
     Route: 065
  4. TAZOCILLINE [Concomitant]
     Active Substance: PIPERACILLIN SODIUM\TAZOBACTAM SODIUM
     Indication: HAEMODYNAMIC TEST ABNORMAL
     Dosage: UNK
     Route: 065
     Dates: start: 20151109, end: 20151111
  5. MITOXANTRONE [Suspect]
     Active Substance: MITOXANTRONE HYDROCHLORIDE
     Indication: MULTIPLE SCLEROSIS
  6. GILENYA [Suspect]
     Active Substance: FINGOLIMOD HYDROCHLORIDE
     Indication: MULTIPLE SCLEROSIS
     Dosage: 0.5 MG, QD
     Route: 048
     Dates: start: 20150204, end: 20150801
  7. AMIKLIN [Concomitant]
     Active Substance: AMIKACIN SULFATE
     Indication: HAEMODYNAMIC TEST ABNORMAL
     Dosage: UNK
     Route: 065
     Dates: start: 20151109, end: 20151111
  8. MITOXANTRONE [Suspect]
     Active Substance: MITOXANTRONE HYDROCHLORIDE
     Indication: QUADRIPLEGIA
     Dosage: 20 MG, QD
     Route: 042
     Dates: start: 20150930, end: 20151217
  9. MIRTAZAPIN [Concomitant]
     Active Substance: MIRTAZAPINE
     Indication: DEPRESSION
     Dosage: 30 MG, QD
     Route: 065
     Dates: end: 201508

REACTIONS (22)
  - Immune reconstitution inflammatory syndrome [Not Recovered/Not Resolved]
  - Diplegia [Unknown]
  - Neutropenia [Recovered/Resolved]
  - Pyrexia [Recovered/Resolved]
  - Abasia [Unknown]
  - Quadriplegia [Unknown]
  - Lung disorder [Unknown]
  - Extensor plantar response [Unknown]
  - Fall [Unknown]
  - Aphasia [Unknown]
  - Aspiration [Unknown]
  - Hoffmann^s sign [Unknown]
  - Muscle spasticity [Unknown]
  - Disturbance in attention [Unknown]
  - Cerebellar syndrome [Unknown]
  - Neurological decompensation [Unknown]
  - Hemianopia homonymous [Unknown]
  - Mobility decreased [Unknown]
  - Leukopenia [Unknown]
  - Dysphagia [Unknown]
  - Foot deformity [Unknown]
  - Hypokinesia [Unknown]

NARRATIVE: CASE EVENT DATE: 20150910
